FAERS Safety Report 13968019 (Version 6)
Quarter: 2017Q4

REPORT INFORMATION
  Report Type: Spontaneous
  Country: US (occurrence: US)
  Receive Date: 20170914
  Receipt Date: 20171218
  Transmission Date: 20180320
  Serious: Yes (Hospitalization, Other)
  Sender: FDA-Public Use
  Company Number: US-ASTRAZENECA-2017SE91762

PATIENT
  Age: 13499 Day
  Sex: Female
  Weight: 122 kg

DRUGS (23)
  1. LISINOPRIL. [Concomitant]
     Active Substance: LISINOPRIL
     Indication: BLOOD PRESSURE MEASUREMENT
     Route: 048
  2. MAXZIDE [Concomitant]
     Active Substance: HYDROCHLOROTHIAZIDE\TRIAMTERENE
  3. METFORMIN [Concomitant]
     Active Substance: METFORMIN HYDROCHLORIDE
     Dates: start: 20150219
  4. ULTRAM [Concomitant]
     Active Substance: TRAMADOL HYDROCHLORIDE
  5. GABAPENTIN. [Concomitant]
     Active Substance: GABAPENTIN
     Dosage: 1 PO QAM, 1 PO NOON, 2 PO QHS
     Route: 048
  6. LANTUS [Concomitant]
     Active Substance: INSULIN GLARGINE
     Dosage: 35 UNITS A DAY IN MORNING, 20 IN AFTERNOON AND 20 AT NIGHT
  7. CLONIDINE. [Concomitant]
     Active Substance: CLONIDINE
  8. NORVASC [Concomitant]
     Active Substance: AMLODIPINE BESYLATE
  9. EVERMERE [Concomitant]
     Dosage: 20 UNITS A DAY
  10. PHENTERMINE HYDROCHLORIDE. [Concomitant]
     Active Substance: PHENTERMINE HYDROCHLORIDE
  11. PSEUDOEPHEDRINE [Concomitant]
     Active Substance: PSEUDOEPHEDRINE
  12. INDOMETHACIN. [Concomitant]
     Active Substance: INDOMETHACIN
  13. PRAVASTATIN. [Concomitant]
     Active Substance: PRAVASTATIN
     Dosage: 1 PO QAM, 1 PO NOON, 2 PO QHS
     Route: 048
  14. TRAMADOL. [Concomitant]
     Active Substance: TRAMADOL
  15. SIGUDO [Concomitant]
     Indication: DIABETES MELLITUS
  16. FARXIGA [Suspect]
     Active Substance: DAPAGLIFLOZIN PROPANEDIOL
     Indication: TYPE 2 DIABETES MELLITUS
     Route: 048
  17. XIGDUO XR [Suspect]
     Active Substance: DAPAGLIFLOZIN PROPANEDIOL\METFORMIN HYDROCHLORIDE
     Indication: TYPE 2 DIABETES MELLITUS
     Dosage: 10MG/1000 MG DAILY
     Route: 048
     Dates: start: 20150527, end: 20150730
  18. MONTELUKAST SODIUM. [Concomitant]
     Active Substance: MONTELUKAST SODIUM
  19. VITAMIN D [Concomitant]
     Active Substance: CHOLECALCIFEROL
  20. TRIPOLIDINE [Concomitant]
  21. METOPROLOL SUCCINATE. [Concomitant]
     Active Substance: METOPROLOL SUCCINATE
     Dosage: 1000.0MG UNKNOWN
     Dates: start: 2013
  22. VICTOZA [Concomitant]
     Active Substance: LIRAGLUTIDE
     Dates: start: 2016
  23. GLIPIZIDE. [Concomitant]
     Active Substance: GLIPIZIDE

REACTIONS (5)
  - Acute kidney injury [Unknown]
  - Diabetic ketoacidosis [Unknown]
  - Chronic kidney disease [Unknown]
  - Diabetic neuropathy [Unknown]
  - Blood cholesterol increased [Unknown]

NARRATIVE: CASE EVENT DATE: 20150730
